FAERS Safety Report 20832921 (Version 1)
Quarter: 2022Q2

REPORT INFORMATION
  Report Type: Spontaneous
  Country: US (occurrence: US)
  Receive Date: 20220516
  Receipt Date: 20220516
  Transmission Date: 20220721
  Serious: No
  Sender: FDA-Public Use
  Company Number: US-TEVA-2022-US-2034500

PATIENT
  Age: 45 Year
  Sex: Female

DRUGS (1)
  1. TAMOXIFEN CITRATE [Suspect]
     Active Substance: TAMOXIFEN CITRATE
     Indication: Prophylactic chemotherapy
     Dates: start: 202111

REACTIONS (2)
  - Protein total abnormal [Unknown]
  - Gluten sensitivity [Unknown]
